FAERS Safety Report 6531475-X (Version None)
Quarter: 2010Q1

REPORT INFORMATION
  Report Type: 
  Country: None (occurrence: None)
  Receive Date: 20100108
  Receipt Date: 20090731
  Transmission Date: 20100710
  Serious: No
  Sender: FDA-Public Use
  Company Number: US-BAYER-200911815BCC

PATIENT
  Age: 72 Year
  Sex: Female
  Weight: 77 kg

DRUGS (5)
  1. ALEVE [Suspect]
     Indication: PAIN IN EXTREMITY
     Dosage: TOTAL DAILY DOSE: 220 MG  UNIT DOSE: 220 MG
     Route: 048
     Dates: start: 20090603, end: 20090604
  2. ALEVE [Suspect]
     Dosage: TOTAL DAILY DOSE: 220 MG  UNIT DOSE: 220 MG
     Route: 048
     Dates: start: 20090606, end: 20090606
  3. ATENOLOL [Concomitant]
     Route: 065
  4. MYLEXOPRIL [Concomitant]
     Route: 065
  5. DYNACIRC [Concomitant]
     Route: 065

REACTIONS (5)
  - ERYTHEMA [None]
  - FEELING HOT [None]
  - PRURITUS [None]
  - SWELLING [None]
  - URTICARIA [None]
